FAERS Safety Report 9252916 (Version 2)
Quarter: 2013Q4

REPORT INFORMATION
  Report Type: Spontaneous
  Country: DK (occurrence: CA)
  Receive Date: 20130424
  Receipt Date: 20131213
  Transmission Date: 20140711
  Serious: Yes (Death, Other)
  Sender: FDA-Public Use
  Company Number: CA-FRI-1000044638

PATIENT
  Age: 58 Year
  Sex: Male

DRUGS (13)
  1. CITALOPRAM [Suspect]
     Dosage: 10 MG
     Route: 048
  2. CITALOPRAM [Suspect]
     Dosage: 20 MG
     Route: 048
  3. ESCITALOPRAM [Suspect]
     Dosage: 10 MG
  4. CLOMIPRAMINE [Suspect]
     Indication: OBSESSIVE-COMPULSIVE DISORDER
     Dosage: 25 MG
     Route: 048
  5. CLOMIPRAMINE [Suspect]
     Route: 048
  6. HALOPERIDOL [Suspect]
     Dosage: 1 MG
  7. OLANZAPINE [Suspect]
     Dosage: 15 MG
     Route: 048
  8. PAROXETINE [Suspect]
     Dosage: 5 MG
  9. PAROXETINE [Suspect]
     Dosage: 10 MG
  10. QUETIAPINE [Suspect]
     Dosage: 25 MG
  11. SERTRALINE [Suspect]
     Indication: COMPULSIONS
  12. TRAZODONE [Suspect]
  13. VALPROIC ACID [Suspect]

REACTIONS (9)
  - Abdominal pain upper [Fatal]
  - Bradykinesia [Fatal]
  - Cogwheel rigidity [Fatal]
  - Confusional state [Fatal]
  - Drug ineffective [Fatal]
  - Drug intolerance [Fatal]
  - Hyperhidrosis [Fatal]
  - Resting tremor [Fatal]
  - Parkinsonism [Fatal]
